FAERS Safety Report 21416860 (Version 8)
Quarter: 2023Q1

REPORT INFORMATION
  Report Type: Report from Study
  Country: US (occurrence: US)
  Receive Date: 20221006
  Receipt Date: 20230318
  Transmission Date: 20230417
  Serious: No
  Sender: FDA-Public Use
  Company Number: US-NOVARTISTESTPH-NVSC2022US223942

PATIENT
  Sex: Female

DRUGS (2)
  1. COSENTYX [Suspect]
     Active Substance: SECUKINUMAB
     Indication: Psoriatic arthropathy
     Dosage: 150 MG, QW (FOUR LOADING DOSES)
     Route: 058
  2. COSENTYX [Suspect]
     Active Substance: SECUKINUMAB
     Dosage: 150 MG, QMO
     Route: 058

REACTIONS (8)
  - Injection site pain [Unknown]
  - Nervousness [Unknown]
  - Injection site bruising [Unknown]
  - Arthralgia [Unknown]
  - Joint stiffness [Unknown]
  - Pain [Unknown]
  - Stress [Unknown]
  - Drug ineffective [Not Recovered/Not Resolved]
